FAERS Safety Report 22629064 (Version 3)
Quarter: 2024Q2

REPORT INFORMATION
  Report Type: Report from Study
  Country: CA (occurrence: CA)
  Receive Date: 20230622
  Receipt Date: 20240503
  Transmission Date: 20240715
  Serious: Yes (Other)
  Sender: FDA-Public Use
  Company Number: CA-GLAXOSMITHKLINE-CA2023AMR084447

PATIENT

DRUGS (3)
  1. BELIMUMAB [Suspect]
     Active Substance: BELIMUMAB
     Indication: Systemic lupus erythematosus
     Dosage: 600 MG, Q4W
     Route: 042
     Dates: start: 20190820
  2. BELIMUMAB [Suspect]
     Active Substance: BELIMUMAB
     Dosage: 600 MG, Q4W
     Route: 042
     Dates: start: 20190820
  3. BELIMUMAB [Suspect]
     Active Substance: BELIMUMAB
     Dosage: 600 MG, Q4W
     Route: 042

REACTIONS (6)
  - Systemic lupus erythematosus [Unknown]
  - Pain [Unknown]
  - Fatigue [Unknown]
  - Mobility decreased [Unknown]
  - Stress [Unknown]
  - Infection [Unknown]
